FAERS Safety Report 5834530-2 (Version None)
Quarter: 2008Q3

REPORT INFORMATION
  Report Type: 
  Country: None (occurrence: None)
  Receive Date: 20080801
  Receipt Date: 20080716
  Transmission Date: 20090109
  Serious: Yes (Hospitalization)
  Sender: FDA-Public Use
  Company Number: 2008AL008330

PATIENT
  Age: 98 Year
  Sex: Female
  Weight: 41 kg

DRUGS (5)
  1. DIGOXIN [Suspect]
     Indication: ATRIAL FIBRILLATION
     Dosage: 0.12MG DAILY PO
     Route: 048
  2. CORVEDILOL [Concomitant]
  3. BUMETANIDE [Concomitant]
  4. KCL LIQUID [Concomitant]
  5. FERROUS SULFATE TAB [Concomitant]

REACTIONS (11)
  - ATRIAL FIBRILLATION [None]
  - BLOOD PRESSURE DECREASED [None]
  - BRADYCARDIA [None]
  - CARDIOACTIVE DRUG LEVEL INCREASED [None]
  - CONTUSION [None]
  - DEHYDRATION [None]
  - FALL [None]
  - HYPOPHAGIA [None]
  - MUSCULOSKELETAL PAIN [None]
  - PHARMACEUTICAL PRODUCT COMPLAINT [None]
  - RENAL FAILURE [None]
